FAERS Safety Report 4394741-2 (Version None)
Quarter: 2004Q3

REPORT INFORMATION
  Report Type: 
  Country: None (occurrence: None)
  Receive Date: 20040707
  Receipt Date: 20040625
  Transmission Date: 20050211
  Serious: Yes (Other)
  Sender: FDA-Public Use
  Company Number: US-SHR-03-014549

PATIENT
  Age: 52 Year
  Sex: Female
  Weight: 67.6 kg

DRUGS (11)
  1. BETASERON [Suspect]
     Indication: PROGRESSIVE MULTIPLE SCLEROSIS
     Dosage: 8 MIU, EVERY 2D, SUBCUTANEOUS
     Route: 058
     Dates: start: 20010601
  2. PRILOSEC [Concomitant]
  3. ESTRACE ^BRISTOL-MYERS SQUIBB^ PATCH [Concomitant]
  4. PROZAC [Concomitant]
  5. CARDIZEM [Concomitant]
  6. VASOTEC [Concomitant]
  7. MICARDIS [Concomitant]
  8. NASACORT [Concomitant]
  9. VITAMIN B-12 [Concomitant]
  10. TYLENOL [Concomitant]
  11. HYDROCHLOROTHIAZIDE [Concomitant]

REACTIONS (7)
  - CARDIAC FAILURE [None]
  - CONDITION AGGRAVATED [None]
  - DIASTOLIC DYSFUNCTION [None]
  - FIBROMUSCULAR DYSPLASIA [None]
  - HYPERTENSION [None]
  - INAPPROPRIATE ANTIDIURETIC HORMONE SECRETION [None]
  - VENTRICULAR HYPERTROPHY [None]
